FAERS Safety Report 6291184-1 (Version None)
Quarter: 2009Q3

REPORT INFORMATION
  Report Type: 
  Country: None (occurrence: None)
  Receive Date: 20090730
  Receipt Date: 20090723
  Transmission Date: 20100115
  Serious: Yes (Life-Threatening)
  Sender: FDA-Public Use
  Company Number: B0586414A

PATIENT
  Sex: Male

DRUGS (3)
  1. AUGMENTIN [Suspect]
     Indication: TOOTH ABSCESS
     Route: 048
     Dates: start: 20090719, end: 20090719
  2. TORADOL [Suspect]
     Indication: TOOTH ABSCESS
     Route: 030
     Dates: start: 20090719, end: 20090719
  3. VOLTAREN [Suspect]
     Indication: TOOTH ABSCESS
     Route: 048
     Dates: start: 20090719, end: 20090719

REACTIONS (4)
  - HYPERHIDROSIS [None]
  - HYPOTENSION [None]
  - PRURITUS [None]
  - URTICARIA [None]
